FAERS Safety Report 7584456-1 (Version None)
Quarter: 2011Q2

REPORT INFORMATION
  Report Type: 
  Country: None (occurrence: None)
  Receive Date: 20110630
  Receipt Date: 20110622
  Transmission Date: 20111010
  Serious: Yes (Other)
  Sender: FDA-Public Use
  Company Number: JP-PFIZER INC-2011142103

PATIENT
  Age: 60 Year
  Sex: Female

DRUGS (2)
  1. ZOSYN [Suspect]
     Dosage: UNK
     Route: 041
  2. LEVOFLOXACIN [Concomitant]
     Route: 041

REACTIONS (1)
  - EOSINOPHILIC PNEUMONIA [None]
